FAERS Safety Report 25444567 (Version 1)
Quarter: 2025Q2

REPORT INFORMATION
  Report Type: Spontaneous
  Country: CA (occurrence: CA)
  Receive Date: 20250617
  Receipt Date: 20250617
  Transmission Date: 20250716
  Serious: Yes (Hospitalization)
  Sender: BOEHRINGER INGELHEIM
  Company Number: CA-BoehringerIngelheim-2025-BI-077248

PATIENT
  Age: 12 Year
  Sex: Male

DRUGS (3)
  1. IPRATROPIUM [Suspect]
     Active Substance: IPRATROPIUM
     Indication: Product used for unknown indication
  2. ALBUTEROL [Concomitant]
     Active Substance: ALBUTEROL
     Indication: Product used for unknown indication
  3. DEXAMETHASONE [Concomitant]
     Active Substance: DEXAMETHASONE
     Indication: Product used for unknown indication

REACTIONS (15)
  - Saliva altered [Recovering/Resolving]
  - Oral pain [Recovering/Resolving]
  - Oropharyngeal pain [Recovering/Resolving]
  - Tachypnoea [Recovering/Resolving]
  - Device use error [Recovering/Resolving]
  - Anticholinergic effect [Recovering/Resolving]
  - Asthma [Recovering/Resolving]
  - Dehydration [Recovering/Resolving]
  - Respiratory alkalosis [Recovering/Resolving]
  - Anion gap abnormal [Recovering/Resolving]
  - Osmolar gap abnormal [Recovering/Resolving]
  - Lip erythema [Recovering/Resolving]
  - Erythema [Recovering/Resolving]
  - Lip dry [Recovering/Resolving]
  - Chapped lips [Recovering/Resolving]
